FAERS Safety Report 7332913-5 (Version None)
Quarter: 2011Q1

REPORT INFORMATION
  Report Type: 
  Country: None (occurrence: None)
  Receive Date: 20110304
  Receipt Date: 20110225
  Transmission Date: 20110831
  Serious: Yes (Hospitalization)
  Sender: FDA-Public Use
  Company Number: US-ASTRAZENECA-2011SE10875

PATIENT
  Age: 17355 Day
  Sex: Male

DRUGS (5)
  1. SEROQUEL [Suspect]
     Indication: MAJOR DEPRESSION
     Route: 048
     Dates: start: 20060101
  2. SEROQUEL [Suspect]
     Indication: PANIC ATTACK
     Route: 048
     Dates: start: 20060101
  3. PAIN PILL [Concomitant]
  4. STOOL SOFTENER [Concomitant]
  5. PROTONIX [Concomitant]

REACTIONS (6)
  - BEDRIDDEN [None]
  - FEMUR FRACTURE [None]
  - UPPER LIMB FRACTURE [None]
  - ROAD TRAFFIC ACCIDENT [None]
  - LOWER LIMB FRACTURE [None]
  - WEIGHT DECREASED [None]
